FAERS Safety Report 4597808-9 (Version None)
Quarter: 2005Q1

REPORT INFORMATION
  Report Type: 
  Country: None (occurrence: None)
  Receive Date: 20050303
  Receipt Date: 20050228
  Transmission Date: 20050727
  Serious: Yes (Hospitalization)
  Sender: FDA-Public Use
  Company Number: CA-MERCK-0502CAN00168

PATIENT
  Sex: Female

DRUGS (3)
  1. VIOXX [Suspect]
     Route: 048
     Dates: start: 20000101, end: 20010101
  2. METOPROLOL TARTRATE [Concomitant]
     Route: 065
  3. SPIRONOLACTONE [Concomitant]
     Route: 065

REACTIONS (2)
  - PAIN [None]
  - PULMONARY EMBOLISM [None]
